FAERS Safety Report 5533942-4 (Version None)
Quarter: 2007Q4

REPORT INFORMATION
  Report Type: 
  Country: None (occurrence: None)
  Receive Date: 20071129
  Receipt Date: 20071113
  Transmission Date: 20080405
  Serious: Yes (Life-Threatening)
  Sender: FDA-Public Use
  Company Number: DSA_30914_2007

PATIENT
  Age: 74 Year
  Sex: Male

DRUGS (6)
  1. ENALAPRIL MALEATE [Suspect]
     Indication: DRUG USE FOR UNKNOWN INDICATION
     Dosage: (10 MG QD ORAL)
     Route: 048
  2. ASPIRIN [Concomitant]
  3. NORVASC /00972402/ [Concomitant]
  4. CONCOR /00802602/ [Concomitant]
  5. TOREM /01036501/ [Concomitant]
  6. ZOCOR [Concomitant]

REACTIONS (5)
  - ELECTROLYTE IMBALANCE [None]
  - HYPERKALAEMIA [None]
  - MUSCLE TWITCHING [None]
  - PARAESTHESIA ORAL [None]
  - VERTIGO [None]
